FAERS Safety Report 7219308 (Version 3)
Quarter: 2013Q3

REPORT INFORMATION
  Report Type: Spontaneous
  Country: DE (occurrence: DE)
  Receive Date: 20091216
  Receipt Date: 20130814
  Transmission Date: 20140515
  Serious: Yes (Hospitalization, Other)
  Sender: FDA-Public Use
  Company Number: DE-JNJFOC-20091202257

PATIENT
  Age: 16 Year
  Sex: Male

DRUGS (4)
  1. TOPAMAX [Suspect]
     Indication: EPILEPSY
     Route: 048
     Dates: start: 20081203
  2. TOPAMAX [Suspect]
     Indication: EPILEPSY
     Route: 048
     Dates: start: 20081220
  3. TOPAMAX [Suspect]
     Indication: EPILEPSY
     Route: 048
     Dates: start: 2009, end: 2010
  4. KEPRA [Suspect]
     Indication: EPILEPSY
     Route: 065
     Dates: start: 200809

REACTIONS (3)
  - Meniere^s disease [Recovering/Resolving]
  - Sudden hearing loss [Recovering/Resolving]
  - Hearing impaired [Recovering/Resolving]
